FAERS Safety Report 6089600-3 (Version None)
Quarter: 2009Q1

REPORT INFORMATION
  Report Type: 
  Country: None (occurrence: None)
  Receive Date: 20090224
  Receipt Date: 20090210
  Transmission Date: 20090719
  Serious: Yes (Hospitalization, Disabling)
  Sender: FDA-Public Use
  Company Number: PHHY2009FR05015

PATIENT
  Age: 42 Year
  Sex: Female

DRUGS (8)
  1. LESCOL [Suspect]
     Indication: HYPERCHOLESTEROLAEMIA
     Dosage: UNK
     Route: 048
     Dates: start: 20080908, end: 20081011
  2. SALAZOPYRINE [Suspect]
     Indication: RHEUMATOID ARTHRITIS
     Dosage: UNK
     Route: 048
     Dates: start: 20080908, end: 20081011
  3. CYCLADOL [Suspect]
     Dosage: UNK
     Route: 048
     Dates: start: 20080908, end: 20081011
  4. ZOLPIDEM [Suspect]
     Dosage: UNK
     Route: 048
     Dates: start: 20080818
  5. EFFEXOR [Suspect]
     Dosage: UNK
     Route: 048
     Dates: start: 20080908
  6. OGASTRO [Concomitant]
     Indication: DUODENAL ULCER
     Dosage: UNK
     Route: 048
     Dates: start: 20080829, end: 20080928
  7. PIROXICAM [Concomitant]
     Dosage: UNK
     Route: 048
     Dates: start: 20080818, end: 20080908
  8. PROPOFAN [Concomitant]
     Dosage: UNK
     Dates: start: 20080801, end: 20080908

REACTIONS (20)
  - ACUTE RESPIRATORY DISTRESS SYNDROME [None]
  - ANAL FISSURE [None]
  - ASTHENIA [None]
  - CELL DEATH [None]
  - CHOLESTASIS [None]
  - DERMATITIS EXFOLIATIVE [None]
  - DIARRHOEA [None]
  - DRUG RASH WITH EOSINOPHILIA AND SYSTEMIC SYMPTOMS [None]
  - ENDOTRACHEAL INTUBATION [None]
  - FACE OEDEMA [None]
  - HAEMODYNAMIC INSTABILITY [None]
  - HEPATIC FAILURE [None]
  - HEPATITIS [None]
  - HEPATOMEGALY [None]
  - LYMPHOCYTOSIS [None]
  - MECHANICAL VENTILATION [None]
  - NAUSEA [None]
  - PYREXIA [None]
  - RASH [None]
  - SEPTIC SHOCK [None]
